FAERS Safety Report 25024462 (Version 1)
Quarter: 2025Q1

REPORT INFORMATION
  Report Type: Spontaneous
  Country: US (occurrence: US)
  Receive Date: 20250228
  Receipt Date: 20250228
  Transmission Date: 20250409
  Serious: Yes (Hospitalization)
  Sender: SANOFI AVENTIS
  Company Number: US-SA-2025SA059416

PATIENT
  Age: 66 Year
  Sex: Male
  Weight: 132.73 kg

DRUGS (12)
  1. DUPIXENT [Suspect]
     Active Substance: DUPILUMAB
     Indication: Asthma
     Dosage: 300 MG, QOW
     Route: 058
     Dates: start: 202306
  2. PREDNISONE [Concomitant]
     Active Substance: PREDNISONE
  3. VITAMIN D3 [Concomitant]
     Active Substance: CHOLECALCIFEROL
  4. XOPENEX HFA [Concomitant]
     Active Substance: LEVALBUTEROL TARTRATE
  5. OSELTAMIVIR PHOSPHATE [Concomitant]
     Active Substance: OSELTAMIVIR PHOSPHATE
  6. LEVALBUTEROL HYDROCHLORIDE [Concomitant]
     Active Substance: LEVALBUTEROL HYDROCHLORIDE
  7. TRIAMCINOLONE ACETONIDE [Concomitant]
     Active Substance: TRIAMCINOLONE ACETONIDE
  8. NYSTOP [Concomitant]
     Active Substance: NYSTATIN
  9. LORATADINE [Concomitant]
     Active Substance: LORATADINE
  10. FISH OIL [Concomitant]
     Active Substance: FISH OIL
  11. VITAMINS [Concomitant]
     Active Substance: VITAMINS
  12. CALCIUM [Concomitant]
     Active Substance: CALCIUM

REACTIONS (3)
  - COVID-19 [Unknown]
  - Influenza [Not Recovered/Not Resolved]
  - Therapeutic response unexpected [Unknown]

NARRATIVE: CASE EVENT DATE: 20230101
